FAERS Safety Report 23926920 (Version 1)
Quarter: 2024Q2

REPORT INFORMATION
  Report Type: Report from Study
  Country: ES (occurrence: ES)
  Receive Date: 20240531
  Receipt Date: 20240531
  Transmission Date: 20240716
  Serious: Yes (Disabling)
  Sender: FDA-Public Use
  Company Number: ES-TEVA-VS-3203129

PATIENT
  Age: 64 Year
  Sex: Female

DRUGS (7)
  1. TERIPARATIDE [Suspect]
     Active Substance: TERIPARATIDE
     Indication: Osteoporosis
     Dosage: 20MCG/80MCL
     Route: 065
     Dates: start: 20240202
  2. ATORVASTATIN CALCIUM [Concomitant]
     Active Substance: ATORVASTATIN CALCIUM
     Indication: Hypercholesterolaemia
     Dosage: START DATE: SOME TIME AGO; END DATE: CONTINUED
  3. OFTAN MACULA [Concomitant]
     Indication: Macular degeneration
     Dosage: START DATE: SOME TIME AGO; END DATE: CONTINUED
  4. EDUNIX [Concomitant]
     Indication: Pain
     Dosage: START DATE: SOME TIME AGO; END DATE: CONTINUED
  5. LORAZEPAM [Concomitant]
     Active Substance: LORAZEPAM
     Indication: Insomnia
     Dosage: DOSAGE: 0-0-1; START DATE: SOME TIME AGO; END DATE: CONTINUED
  6. ESCITALOPRAM OXALATE [Concomitant]
     Active Substance: ESCITALOPRAM OXALATE
     Indication: Depression
     Dosage: DOSAGE: 1-0-0; START DATE: 3 WEEKS AGO; END DATE: CONTINUED
     Dates: start: 2024
  7. PANTOPRAZOLE SODIUM [Concomitant]
     Active Substance: PANTOPRAZOLE SODIUM
     Indication: Antacid therapy
     Dosage: DOSAGE: 1-0-0; START DATE: SOME TIME AGO; END DATE: CONTINUED

REACTIONS (5)
  - Blood pressure increased [Not Recovered/Not Resolved]
  - Hyperhidrosis [Not Recovered/Not Resolved]
  - Injection site pain [Not Recovered/Not Resolved]
  - Fatigue [Not Recovered/Not Resolved]
  - Injection site pain [Recovered/Resolved]

NARRATIVE: CASE EVENT DATE: 20240101
